APPROVED DRUG PRODUCT: BUPHENYL
Active Ingredient: SODIUM PHENYLBUTYRATE
Strength: 3GM/TEASPOONFUL
Dosage Form/Route: POWDER;ORAL
Application: N020573 | Product #001
Applicant: HORIZON THERAPEUTICS US HOLDING LLC
Approved: Apr 30, 1996 | RLD: Yes | RS: No | Type: DISCN